FAERS Safety Report 6161024-X (Version None)
Quarter: 2009Q2

REPORT INFORMATION
  Report Type: 
  Country: None (occurrence: None)
  Receive Date: 20090420
  Receipt Date: 20090408
  Transmission Date: 20091009
  Serious: Yes (Other)
  Sender: FDA-Public Use
  Company Number: DE-PFIZER INC-2009195644

PATIENT

DRUGS (1)
  1. CELEBREX [Suspect]
     Dosage: UNK
     Route: 048

REACTIONS (4)
  - ARRHYTHMIA [None]
  - HYPERHIDROSIS [None]
  - MUSCLE TIGHTNESS [None]
  - RASH [None]
